FAERS Safety Report 5591427-3 (Version None)
Quarter: 2008Q1

REPORT INFORMATION
  Report Type: 
  Country: None (occurrence: None)
  Receive Date: 20080111
  Receipt Date: 20080111
  Transmission Date: 20080703
  Serious: Yes (Hospitalization)
  Sender: FDA-Public Use
  Company Number: None

PATIENT
  Age: 59 Year
  Sex: Male
  Weight: 105.2345 kg

DRUGS (15)
  1. PEG-INTRON [Suspect]
     Indication: HEREDITARY HAEMORRHAGIC TELANGIECTASIA
     Dosage: 96 MCG SQ ONCE WEEKLY
     Route: 058
     Dates: start: 20080107
  2. ALLEGRA [Concomitant]
  3. FLONASE [Concomitant]
  4. PREVACID [Concomitant]
  5. MULTI-VITAMIN [Concomitant]
  6. ASCORBIC ACID [Concomitant]
  7. FOLIC ACID [Concomitant]
  8. FISH OIL [Concomitant]
  9. POTASSIUM GLUCONATE TAB [Concomitant]
  10. CALTRATE [Concomitant]
  11. VITAMIN D [Concomitant]
  12. ZOLOFT [Concomitant]
  13. FERROUS SULFATE [Concomitant]
  14. IMODIUM [Concomitant]
  15. PROTONIX [Concomitant]

REACTIONS (5)
  - GASTRIC ULCER [None]
  - GASTROINTESTINAL HAEMORRHAGE [None]
  - HAEMOGLOBIN DECREASED [None]
  - HYPOTENSION [None]
  - INTESTINAL DILATATION [None]
